FAERS Safety Report 10271697 (Version 1)
Quarter: 2014Q3

REPORT INFORMATION
  Report Type: Spontaneous
  Country: US (occurrence: US)
  Receive Date: 20140701
  Receipt Date: 20140701
  Transmission Date: 20150326
  Serious: No
  Sender: FDA-Public Use
  Company Number: US-SA-2014SA006741

PATIENT
  Age: 42 Year
  Sex: Female
  Weight: 52.29 kg

DRUGS (10)
  1. SODIUM CHLORIDE. [Concomitant]
     Active Substance: SODIUM CHLORIDE
  2. ZITHROMAX [Concomitant]
     Active Substance: AZITHROMYCIN DIHYDRATE
  3. ADVIL [Concomitant]
     Active Substance: IBUPROFEN
  4. MULTIVITAMINS [Concomitant]
     Active Substance: VITAMINS
  5. EPINEPHRINE. [Concomitant]
     Active Substance: EPINEPHRINE
  6. CEREZYME [Suspect]
     Active Substance: IMIGLUCERASE
     Indication: GAUCHER^S DISEASE
     Dosage: DOSE:38.3 UNIT(S)/KILOGRAM BODYWEIGHT
     Route: 042
     Dates: start: 20120607
  7. SEASONALE [Concomitant]
     Active Substance: ETHINYL ESTRADIOL\LEVONORGESTREL
  8. PROPRANOLOL [Concomitant]
     Active Substance: PROPRANOLOL\PROPRANOLOL HYDROCHLORIDE
  9. NORMAL SALINE [Concomitant]
     Active Substance: SODIUM CHLORIDE
  10. WATER FOR INJECTION [Concomitant]
     Active Substance: WATER

REACTIONS (1)
  - Influenza [Not Recovered/Not Resolved]
